FAERS Safety Report 7207069-X (Version None)
Quarter: 2011Q1

REPORT INFORMATION
  Report Type: 
  Country: None (occurrence: None)
  Receive Date: 20110103
  Receipt Date: 20101221
  Transmission Date: 20110831
  Serious: Yes (Hospitalization, Other)
  Sender: FDA-Public Use
  Company Number: B0691528A

PATIENT
  Age: 90 Year
  Sex: Female

DRUGS (6)
  1. PROPAFENONE HCL [Suspect]
     Indication: ARRHYTHMIA SUPRAVENTRICULAR
     Dosage: 150MG TWICE PER DAY
     Route: 048
     Dates: start: 20070101, end: 20101207
  2. COZAAR [Concomitant]
     Indication: ESSENTIAL HYPERTENSION
     Dosage: 50MG PER DAY
     Route: 048
  3. MEMANTINE [Concomitant]
  4. DIGOXIN [Suspect]
     Indication: ARRHYTHMIA SUPRAVENTRICULAR
     Dosage: .25MG PER DAY
     Route: 048
     Dates: start: 20070101, end: 20101207
  5. BAYPRESS [Suspect]
     Indication: ESSENTIAL HYPERTENSION
     Dosage: 1UNIT PER DAY
     Route: 048
     Dates: end: 20101201
  6. TOREM [Concomitant]

REACTIONS (14)
  - DIZZINESS [None]
  - CHEST DISCOMFORT [None]
  - DECREASED APPETITE [None]
  - SYNCOPE [None]
  - DRUG INTERACTION [None]
  - ATRIOVENTRICULAR BLOCK FIRST DEGREE [None]
  - BRADYCARDIA [None]
  - DRUG LEVEL INCREASED [None]
  - ELECTROCARDIOGRAM ST SEGMENT DEPRESSION [None]
  - HYPERTENSION [None]
  - ANGINA PECTORIS [None]
  - NAUSEA [None]
  - TOXICITY TO VARIOUS AGENTS [None]
  - DRUG EFFECT INCREASED [None]
